FAERS Safety Report 8608019-1 (Version None)
Quarter: 2012Q3

REPORT INFORMATION
  Report Type: 
  Country: None (occurrence: None)
  Receive Date: 20120809
  Receipt Date: 20120809
  Transmission Date: 20120928
  Serious: Yes (Hospitalization)
  Sender: FDA-Public Use
  Company Number: None

PATIENT
  Age: 81 Year
  Sex: Male
  Weight: 82 kg

DRUGS (2)
  1. AZACITIDINE [Suspect]
     Indication: ACUTE MYELOID LEUKAEMIA
     Dosage: 150MG X 7 DAYS CYCLE 4-
     Dates: start: 20120709, end: 20120715
  2. MIDOSTAURIN 75MG PO BID DAYS 8-21 [Suspect]
     Indication: ACUTE MYELOID LEUKAEMIA
     Dosage: 75MG BID DAY 8-21 CYCLE 4-
     Route: 048
     Dates: start: 20120716, end: 20120729

REACTIONS (3)
  - PELVIC PAIN [None]
  - SCROTAL PAIN [None]
  - PENILE PAIN [None]
